FAERS Safety Report 6859596-2 (Version None)
Quarter: 2010Q3

REPORT INFORMATION
  Report Type: 
  Country: None (occurrence: None)
  Receive Date: 20100719
  Receipt Date: 20081106
  Transmission Date: 20110219
  Serious: No
  Sender: FDA-Public Use
  Company Number: US-PFIZER INC-2008018447

PATIENT
  Sex: Female
  Weight: 72.6 kg

DRUGS (5)
  1. CHANTIX [Suspect]
     Indication: SMOKING CESSATION THERAPY
     Route: 048
     Dates: start: 20080209
  2. PREVACID [Concomitant]
  3. VITAMINS [Concomitant]
  4. PERCOCET [Concomitant]
     Indication: PAIN
  5. OXYCODONE HCL [Concomitant]
     Indication: PAIN

REACTIONS (8)
  - ERUCTATION [None]
  - FLATULENCE [None]
  - GALLBLADDER DISORDER [None]
  - HYPERSENSITIVITY [None]
  - INCORRECT DOSE ADMINISTERED [None]
  - MALAISE [None]
  - NAUSEA [None]
  - VOMITING [None]
